FAERS Safety Report 5493034-X (Version None)
Quarter: 2007Q4

REPORT INFORMATION
  Report Type: 
  Country: None (occurrence: None)
  Receive Date: 20071019
  Receipt Date: 20071004
  Transmission Date: 20080405
  Serious: Yes (Death, Hospitalization, Other)
  Sender: FDA-Public Use
  Company Number: STI-2007-01677

PATIENT
  Age: 60 Year
  Sex: Male

DRUGS (2)
  1. HYDROCORTISONE [Suspect]
  2. CHEMOTHERAPY (OTHER CHEMOTHERAPEUTICS) [Suspect]
     Indication: NON-HODGKIN'S LYMPHOMA

REACTIONS (4)
  - BRAIN ABSCESS [None]
  - IMMUNOSUPPRESSION [None]
  - NOCARDIOSIS [None]
  - SOMNOLENCE [None]
